FAERS Safety Report 9881887 (Version 2)
Quarter: 2014Q1

REPORT INFORMATION
  Report Type: Spontaneous
  Country: US (occurrence: US)
  Receive Date: 20140207
  Receipt Date: 20140304
  Transmission Date: 20141002
  Serious: No
  Sender: FDA-Public Use
  Company Number: US-009507513-1312USA000643

PATIENT
  Age: 72 Year
  Sex: Female
  Weight: 68.93 kg

DRUGS (17)
  1. OXYTROL FOR WOMEN [Suspect]
     Indication: URGE INCONTINENCE
     Dosage: 1 DF, Q4D
     Route: 062
     Dates: start: 20131119
  2. OXYTROL FOR WOMEN [Suspect]
     Indication: STRESS URINARY INCONTINENCE
     Dosage: 1 DF, Q4D
     Route: 062
     Dates: start: 20131119
  3. OXYTROL FOR WOMEN [Suspect]
     Indication: HYPERTONIC BLADDER
  4. NASONEX [Concomitant]
     Indication: SEASONAL ALLERGY
     Dosage: UNK, UNKNOWN
  5. ASTEPRO [Concomitant]
     Indication: SEASONAL ALLERGY
     Dosage: UNK, UNKNOWN
  6. CLARINEX (DESLORATADINE) [Concomitant]
     Indication: SEASONAL ALLERGY
     Dosage: UNK, UNKNOWN
  7. SINGULAIR [Concomitant]
     Indication: SEASONAL ALLERGY
     Dosage: UNK, UNKNOWN
  8. GABAPENTIN [Concomitant]
     Indication: MUSCULOSKELETAL PAIN
     Dosage: UNK, UNKNOWN
  9. ETODOLAC [Concomitant]
     Indication: MUSCULOSKELETAL PAIN
     Dosage: UNK, UNKNOWN
  10. CYCLOBENZAPRINE HYDROCHLORIDE [Concomitant]
     Indication: MUSCULOSKELETAL PAIN
     Dosage: UNK, UNKNOWN
  11. TYLENOL [Concomitant]
     Indication: MUSCULOSKELETAL PAIN
     Dosage: UNK, UNKNOWN
  12. LIDOCAINE [Concomitant]
     Indication: MUSCULOSKELETAL PAIN
     Dosage: UNK, UNKNOWN
  13. NEXIUM [Concomitant]
     Indication: GASTROOESOPHAGEAL REFLUX DISEASE
     Dosage: 40 MG, QD
  14. TUMS [Concomitant]
     Indication: GASTROOESOPHAGEAL REFLUX DISEASE
     Dosage: UNK, PRN
  15. TOVIAZ [Concomitant]
     Indication: URGE INCONTINENCE
     Dosage: 4 MG, BID
  16. TOVIAZ [Concomitant]
     Indication: STRESS URINARY INCONTINENCE
  17. TOVIAZ [Concomitant]
     Indication: HYPERTONIC BLADDER

REACTIONS (3)
  - Pollakiuria [Unknown]
  - Drug effect decreased [Unknown]
  - Off label use [Unknown]
